FAERS Safety Report 13347247 (Version 7)
Quarter: 2018Q1

REPORT INFORMATION
  Report Type: Report from Study
  Country: US (occurrence: US)
  Receive Date: 20170317
  Receipt Date: 20180330
  Transmission Date: 20180508
  Serious: Yes (Hospitalization)
  Sender: FDA-Public Use
  Company Number: US-PFIZER INC-2017099959

PATIENT
  Age: 6 Year
  Sex: Male
  Weight: 22 kg

DRUGS (26)
  1. CYTARABINE. [Suspect]
     Active Substance: CYTARABINE
     Dosage: 66 MG, SINGLE
     Route: 042
     Dates: start: 20170724
  2. METHOTREXATE SODIUM. [Suspect]
     Active Substance: METHOTREXATE SODIUM
     Dosage: 4175 MG, HIGH DOSE METHOTREXATE,1?
     Route: 037
     Dates: start: 20170327
  3. METHOTREXATE SODIUM. [Suspect]
     Active Substance: METHOTREXATE SODIUM
     Dosage: 12 MG, SINGLE
     Route: 037
     Dates: start: 20170724
  4. CYCLOPHOSPHAMIDE. [Suspect]
     Active Substance: CYCLOPHOSPHAMIDE
     Indication: ACUTE LYMPHOCYTIC LEUKAEMIA
     Dosage: 1000 MG/M2/DOSE, TREATMENT DAY 1, 1?
     Route: 042
     Dates: start: 20170123
  5. PEGASPARGASE [Suspect]
     Active Substance: PEGASPARGASE
     Indication: ACUTE LYMPHOCYTIC LEUKAEMIA
     Dosage: 2500 IU/M2/DOSE, TREATMENT DAY 15, 1?, CYCLIC
     Route: 042
     Dates: start: 20170206
  6. THIOGUANINE [Suspect]
     Active Substance: THIOGUANINE
     Indication: ACUTE LYMPHOCYTIC LEUKAEMIA
     Dosage: 60 MG, 1X/DAY (TABLET)
     Route: 048
     Dates: start: 20170724
  7. BACTRIM [Concomitant]
     Active Substance: SULFAMETHOXAZOLE\TRIMETHOPRIM
     Dosage: UNK
     Dates: start: 20161220
  8. LEVOFLOXACIN. [Concomitant]
     Active Substance: LEVOFLOXACIN
     Dosage: UNK
     Dates: start: 20170303
  9. CYTARABINE. [Suspect]
     Active Substance: CYTARABINE
     Indication: ACUTE LYMPHOCYTIC LEUKAEMIA
     Dosage: 75 MG/M2/DOSE, TREATMENT DAYS 1-4 AND 8-11, 1?
     Route: 042
     Dates: start: 20170123
  10. PEGASPARGASE [Suspect]
     Active Substance: PEGASPARGASE
     Dosage: 2175 IU, SINGLE
     Route: 042
     Dates: start: 20170808
  11. METHOTREXATE SODIUM. [Suspect]
     Active Substance: METHOTREXATE SODIUM
     Dosage: 12 MG, 1X UNK
     Route: 037
     Dates: start: 20170327
  12. MERCAPTOPURINE. [Suspect]
     Active Substance: MERCAPTOPURINE
     Dosage: 25 MG, QD
     Route: 048
     Dates: start: 20170327
  13. CALCIUM FOLINATE [Suspect]
     Active Substance: LEUCOVORIN CALCIUM
     Indication: ACUTE LYMPHOCYTIC LEUKAEMIA
     Dosage: 15 MG, Q6H
     Route: 048
     Dates: start: 20170329
  14. VINCRISTINE SULFATE. [Suspect]
     Active Substance: VINCRISTINE SULFATE
     Indication: ACUTE LYMPHOCYTIC LEUKAEMIA
     Dosage: 1.5 MG/M2/DOSE, TREATMENT DAY 15, 1?
     Route: 042
     Dates: start: 20170206
  15. VINCRISTINE SULFATE. [Suspect]
     Active Substance: VINCRISTINE SULFATE
     Dosage: 1.3 MG, SINGLE DOSE
     Route: 042
  16. VINCRISTINE SULFATE. [Suspect]
     Active Substance: VINCRISTINE SULFATE
     Dosage: 1.3 MG, SINGLE
     Route: 042
     Dates: start: 20170327
  17. VINCRISTINE SULFATE. [Suspect]
     Active Substance: VINCRISTINE SULFATE
     Dosage: 1.3 MG, SINGLE
     Route: 042
     Dates: start: 20170808
  18. CYTARABINE. [Suspect]
     Active Substance: CYTARABINE
     Dosage: 64 MG, UNK
     Route: 042
  19. MERCAPTOPURINE. [Suspect]
     Active Substance: MERCAPTOPURINE
     Indication: ACUTE LYMPHOCYTIC LEUKAEMIA
     Dosage: 60 MG/M2/DOSE, TREATMENT DAYS 1-14, QD
     Route: 048
     Dates: start: 20170123
  20. PEGASPARGASE [Suspect]
     Active Substance: PEGASPARGASE
     Dosage: 2175 IU, SINGLE DOSE
     Route: 042
  21. INCB018424 [Suspect]
     Active Substance: RUXOLITINIB
     Indication: ACUTE LYMPHOCYTIC LEUKAEMIA
     Dosage: (TABLET) 25 MG, BID TREATMENT DAYS 1 - 14
     Route: 048
     Dates: start: 20170123
  22. METHOTREXATE SODIUM. [Suspect]
     Active Substance: METHOTREXATE SODIUM
     Indication: ACUTE LYMPHOCYTIC LEUKAEMIA
     Dosage: 12 MG, TREATMENT DAYS 1,8 AND 15, 1?
     Route: 037
     Dates: start: 20170123
  23. INCB018424 [Suspect]
     Active Substance: RUXOLITINIB
     Dosage: (TABLET) 25 MG, BID
     Route: 048
     Dates: start: 20170724
  24. INCB018424 [Suspect]
     Active Substance: RUXOLITINIB
     Dosage: (TABLET) 25 MG, BID
     Route: 048
     Dates: start: 20170327
  25. CYCLOPHOSPHAMIDE. [Suspect]
     Active Substance: CYCLOPHOSPHAMIDE
     Dosage: 860 MG, UNK
     Route: 042
  26. CYCLOPHOSPHAMIDE. [Suspect]
     Active Substance: CYCLOPHOSPHAMIDE
     Dosage: 876 MG, SINGLE
     Route: 042
     Dates: start: 20170724

REACTIONS (5)
  - Human metapneumovirus test positive [Recovered/Resolved]
  - Febrile neutropenia [Recovered/Resolved with Sequelae]
  - Febrile neutropenia [Recovered/Resolved]
  - Febrile neutropenia [Recovered/Resolved]
  - Pyrexia [Recovered/Resolved]

NARRATIVE: CASE EVENT DATE: 20170211
